FAERS Safety Report 8369836-9 (Version None)
Quarter: 2012Q2

REPORT INFORMATION
  Report Type: 
  Country: None (occurrence: None)
  Receive Date: 20120518
  Receipt Date: 20120514
  Transmission Date: 20120825
  Serious: Yes (Other)
  Sender: FDA-Public Use
  Company Number: US-BAYER-2011-053863

PATIENT
  Age: 39 Year
  Sex: Female
  Weight: 65.76 kg

DRUGS (6)
  1. ORTHO TRI-CYCLEN [Concomitant]
  2. PRP (INTERPRETED AS PLATELET RICH PLASMA) [Concomitant]
     Indication: INJURY
     Dosage: UNK
     Dates: start: 20090821
  3. YAZ [Suspect]
     Dosage: UNK
     Route: 048
  4. IBUPROFEN [Concomitant]
     Dosage: UNK UNK, PRN
     Route: 048
     Dates: start: 20090624
  5. LIDOCAINE [Concomitant]
     Dosage: 3 UNK, UNK
     Route: 051
     Dates: start: 20090821
  6. MECLIZINE [Concomitant]
     Dosage: UNK MG, UNK
     Route: 048
     Dates: start: 20090520

REACTIONS (3)
  - DEEP VEIN THROMBOSIS [None]
  - PAIN [None]
  - INJURY [None]
